FAERS Safety Report 14232940 (Version 1)
Quarter: 2017Q4

REPORT INFORMATION
  Report Type: Spontaneous
  Country: US (occurrence: US)
  Receive Date: 20171128
  Receipt Date: 20171128
  Transmission Date: 20180321
  Serious: No
  Sender: FDA-Public Use
  Company Number: US-LEADIANT BIOSCIENCES INC-2017STPI000010

PATIENT
  Sex: Male

DRUGS (4)
  1. OXYCODONE/APAP                     /00867901/ [Concomitant]
     Active Substance: ACETAMINOPHEN\OXYCODONE HYDROCHLORIDE
  2. OMEPRAZOLE. [Concomitant]
     Active Substance: OMEPRAZOLE
  3. KEPPRA [Concomitant]
     Active Substance: LEVETIRACETAM
  4. MATULANE [Suspect]
     Active Substance: PROCARBAZINE HYDROCHLORIDE
     Indication: BRAIN NEOPLASM MALIGNANT
     Dosage: 50 MG TID ON DAYS 8-21 OF A 42 DAY CYCLE
     Route: 048
     Dates: start: 20161009

REACTIONS (2)
  - Nausea [Unknown]
  - Vomiting [Not Recovered/Not Resolved]
